FAERS Safety Report 11177164 (Version 6)
Quarter: 2021Q1

REPORT INFORMATION
  Report Type: Spontaneous
  Country: US (occurrence: US)
  Receive Date: 20150610
  Receipt Date: 20210310
  Transmission Date: 20210419
  Serious: Yes (Other)
  Sender: FDA-Public Use
  Company Number: US-PFIZER INC-2015186684

PATIENT
  Age: 39 Year
  Sex: Male
  Weight: 75 kg

DRUGS (3)
  1. BENEFIX [Suspect]
     Active Substance: COAGULATION FACTOR IX RECOMBINANT HUMAN\ISOPROPYL ALCOHOL
     Indication: FACTOR IX DEFICIENCY
     Dosage: UNK, AS NEEDED (7200 UNITS(+/?10%)=100UNITS/KG=100%DOSE, DAILY)
  2. BENEFIX [Suspect]
     Active Substance: COAGULATION FACTOR IX RECOMBINANT HUMAN\ISOPROPYL ALCOHOL
     Dosage: UNK, DAILY (7500 UNITS (+/?10%) = 100 U/KG DAILY FOR 5 DAYS)
  3. BENEFIX [Suspect]
     Active Substance: COAGULATION FACTOR IX RECOMBINANT HUMAN\ISOPROPYL ALCOHOL
     Dosage: UNK, AS NEEDED (FACTOR 2 DOSES)

REACTIONS (6)
  - Gait disturbance [Unknown]
  - Fall [Unknown]
  - Haemarthrosis [Unknown]
  - Haemorrhage [Unknown]
  - Contusion [Unknown]
  - Pain in extremity [Unknown]
